FAERS Safety Report 8585847-2 (Version None)
Quarter: 2012Q3

REPORT INFORMATION
  Report Type: 
  Country: None (occurrence: None)
  Receive Date: 20120810
  Receipt Date: 20120731
  Transmission Date: 20120928
  Serious: Yes (Hospitalization, Other)
  Sender: FDA-Public Use
  Company Number: US-009507513-1207USA004238

PATIENT

DRUGS (18)
  1. FOSAMAX [Suspect]
     Indication: OSTEOPENIA
     Dosage: 70 MG, QW
     Route: 048
     Dates: start: 20040107, end: 20080408
  2. FOSAMAX [Suspect]
     Indication: OSTEOPOROSIS
     Dosage: 70 MG, QW
     Route: 048
     Dates: start: 20081125, end: 20100726
  3. ALENDRONATE SODIUM [Suspect]
     Indication: OSTEOPOROSIS
     Dosage: 70 MG, UNK
     Route: 048
     Dates: start: 20080407
  4. OLMESARTAN MEDOXOMIL/HYDROCHLOROTHIAZIDE [Concomitant]
     Indication: MALIGNANT HYPERTENSION
     Dosage: 40/25
  5. VITAMINS (UNSPECIFIED) [Concomitant]
     Dosage: UNK
     Dates: start: 20050101, end: 20110101
  6. NEURONTIN [Concomitant]
     Indication: NEURALGIA
  7. GABAPENTIN [Concomitant]
     Indication: NEURALGIA
  8. HYDROCHLOROTHIAZIDE [Concomitant]
     Indication: MALIGNANT HYPERTENSION
  9. ELAVIL [Concomitant]
     Indication: NEURALGIA
     Dosage: UNK
     Dates: start: 20080703
  10. VOLTAREN [Concomitant]
     Indication: NEURALGIA
     Dosage: UNK
     Route: 061
     Dates: start: 20080703
  11. SYNTHROID [Concomitant]
     Indication: HYPOTHYROIDISM
     Dosage: 100 UNK, UNK
     Dates: start: 19950101
  12. CYMBALTA [Concomitant]
     Indication: NEURALGIA
  13. LABETALOL HYDROCHLORIDE [Concomitant]
     Indication: MALIGNANT HYPERTENSION
     Dosage: 300 MG, UNK
  14. LIDODERM [Concomitant]
     Indication: NEURALGIA
  15. LYRICA [Concomitant]
  16. BENICAR [Concomitant]
     Indication: MALIGNANT HYPERTENSION
     Dosage: 40/25
  17. NIFEDIPINE [Concomitant]
     Indication: MALIGNANT HYPERTENSION
     Dosage: 90 MG, BID
  18. CALCIUM (UNSPECIFIED) [Concomitant]
     Dosage: 600-1200
     Dates: start: 20050101

REACTIONS (30)
  - UPPER LIMB FRACTURE [None]
  - TRICUSPID VALVE INCOMPETENCE [None]
  - DRUG INTOLERANCE [None]
  - DRY EYE [None]
  - BURSITIS [None]
  - MITRAL VALVE INCOMPETENCE [None]
  - HYPERLIPIDAEMIA [None]
  - ENDODONTIC PROCEDURE [None]
  - HAND FRACTURE [None]
  - EXCORIATION [None]
  - VENTRICULAR EXTRASYSTOLES [None]
  - DEEP VEIN THROMBOSIS [None]
  - FEMUR FRACTURE [None]
  - MUSCLE CONTRACTURE [None]
  - GINGIVAL GRAFT [None]
  - AORTIC VALVE INCOMPETENCE [None]
  - LUNG NEOPLASM [None]
  - HYPOTENSION [None]
  - BLOOD PRESSURE FLUCTUATION [None]
  - CAROTID ARTERY STENOSIS [None]
  - CARDIAC HYPERTROPHY [None]
  - CHOLELITHIASIS [None]
  - CONSTIPATION [None]
  - DIZZINESS [None]
  - DRUG INEFFECTIVE [None]
  - BASAL CELL CARCINOMA [None]
  - LOW TURNOVER OSTEOPATHY [None]
  - CHEST PAIN [None]
  - SYNCOPE [None]
  - SUPRAVENTRICULAR EXTRASYSTOLES [None]
